FAERS Safety Report 24539215 (Version 1)
Quarter: 2024Q4

REPORT INFORMATION
  Report Type: Spontaneous
  Country: IL (occurrence: IL)
  Receive Date: 20241023
  Receipt Date: 20241023
  Transmission Date: 20250114
  Serious: Yes (Other)
  Sender: RANBAXY
  Company Number: IL-SUN PHARMACEUTICAL INDUSTRIES LTD-2024R1-474708

PATIENT
  Age: 89 Year
  Sex: Male

DRUGS (1)
  1. CODEINE [Suspect]
     Active Substance: CODEINE
     Indication: Intervertebral disc protrusion
     Dosage: UNK (20 MG FOUR-FIVE TIMES DAILY)
     Route: 065

REACTIONS (1)
  - Delirium [Recovered/Resolved]
